FAERS Safety Report 8320781-4 (Version None)
Quarter: 2012Q2

REPORT INFORMATION
  Report Type: 
  Country: None (occurrence: None)
  Receive Date: 20120430
  Receipt Date: 20120418
  Transmission Date: 20120825
  Serious: Yes (Other)
  Sender: FDA-Public Use
  Company Number: PHHY2012BR033794

PATIENT
  Sex: Female
  Weight: 50 kg

DRUGS (2)
  1. TRILEPTAL [Suspect]
     Dosage: 2 ML IN MORNING AND 2 ML AT NIGHT
     Route: 048
  2. EXELON [Suspect]
     Indication: DEMENTIA ALZHEIMER'S TYPE
     Dosage: 1 DF, BID
     Route: 048
     Dates: start: 20020101

REACTIONS (2)
  - SCHIZOPHRENIA [None]
  - INSOMNIA [None]
